FAERS Safety Report 23035551 (Version 2)
Quarter: 2024Q2

REPORT INFORMATION
  Report Type: Report from Study
  Country: DE (occurrence: DE)
  Receive Date: 20231006
  Receipt Date: 20240416
  Transmission Date: 20240716
  Serious: Yes (Hospitalization)
  Sender: FDA-Public Use
  Company Number: DE-ABBVIE-5430974

PATIENT
  Age: 63 Year
  Sex: Female

DRUGS (8)
  1. RINVOQ [Suspect]
     Active Substance: UPADACITINIB
     Indication: Rheumatoid arthritis
     Route: 048
     Dates: start: 202011, end: 202208
  2. RINVOQ [Suspect]
     Active Substance: UPADACITINIB
     Indication: Rheumatoid arthritis
     Route: 048
     Dates: start: 202210, end: 202307
  3. RINVOQ [Suspect]
     Active Substance: UPADACITINIB
     Indication: Rheumatoid arthritis
     Route: 048
     Dates: start: 202308
  4. METHOTREXATE SODIUM [Concomitant]
     Active Substance: METHOTREXATE SODIUM
     Indication: Rheumatoid arthritis
     Dosage: START DATE TEXT: BETWEEN 27 JAN 2016 AND 07 APR 2016?STOP DATE TEXT: BETWEEN 13 JUN 2016 AND 19 J...
  5. METHOTREXATE SODIUM [Concomitant]
     Active Substance: METHOTREXATE SODIUM
     Indication: Rheumatoid arthritis
     Dosage: START DATE TEXT: BETWEEN 13 JUN 2016 AND 19 JAN 2017?STOP DATE TEXT: BETWEEN19 JAN 2017 AND 02 JU...
  6. METHOTREXATE SODIUM [Concomitant]
     Active Substance: METHOTREXATE SODIUM
     Indication: Rheumatoid arthritis
     Dosage: START DATE TEXT: BETWEEN 19 JAN 2017 AND 02 JUN 2017?STOP DATE TEXT: BETWEEN 07 AUG 2019 AND 12 F...
  7. METHOTREXATE SODIUM [Concomitant]
     Active Substance: METHOTREXATE SODIUM
     Indication: Rheumatoid arthritis
     Dosage: START DATE TEXT: BETWEEN 07 AUG 2019 AND 12 FEB 2020?STOP DATE TEXT: BETWEEN 12 FEB 2020 AND 11 A...
  8. METHOTREXATE SODIUM [Concomitant]
     Active Substance: METHOTREXATE SODIUM
     Indication: Rheumatoid arthritis
     Dosage: START DATE TEXT: BETWEEN 12 FEB 2020 AND 11 AUG 2020?STOP DATE TEXT: BETWEEN 21 JAN 2021 AND 26 J...

REACTIONS (3)
  - Osteoarthritis [Recovered/Resolved]
  - Nasopharyngitis [Unknown]
  - Immunodeficiency common variable [Unknown]

NARRATIVE: CASE EVENT DATE: 20230801
